FAERS Safety Report 5367847-9 (Version None)
Quarter: 2007Q2

REPORT INFORMATION
  Report Type: 
  Country: None (occurrence: None)
  Receive Date: 20070622
  Receipt Date: 20070612
  Transmission Date: 20071010
  Serious: Yes (Death, Hospitalization)
  Sender: FDA-Public Use
  Company Number: GB-AMGEN-US152049

PATIENT
  Sex: Female
  Weight: 96 kg

DRUGS (11)
  1. ENBREL [Suspect]
     Indication: RHEUMATOID ARTHRITIS
     Route: 058
     Dates: start: 20040623, end: 20050919
  2. PREDNISOLONE [Concomitant]
     Dosage: 7.5MG FREQUENCY UNKNOWN
     Route: 048
     Dates: start: 20010101
  3. SIMVASTATIN [Concomitant]
     Dosage: UNKNOWN
  4. ATENOLOL [Concomitant]
     Dosage: 50MG FREQUENCY UNKNOWN
     Route: 048
     Dates: start: 20010101
  5. PROCTOSEDYL [Concomitant]
     Dosage: UNKNOWN
  6. WARFARIN [Concomitant]
     Route: 048
     Dates: start: 20041101
  7. ALENDRONATE SODIUM [Concomitant]
     Dosage: UNKNOWN
  8. CELECOXIB [Concomitant]
     Dosage: UNKNOWN
  9. LACTULOSE [Concomitant]
     Dosage: UNKNOWN
  10. METHOTREXATE [Concomitant]
     Route: 048
     Dates: start: 19960101
  11. FELODIPINE [Concomitant]
     Dosage: 2.5MG FREQUENCY UNKNOWN
     Route: 048
     Dates: start: 20010101

REACTIONS (1)
  - BREAST CANCER STAGE III [None]
